FAERS Safety Report 15358296 (Version 1)
Quarter: 2018Q3

REPORT INFORMATION
  Report Type: Spontaneous
  Country: US (occurrence: US)
  Receive Date: 20180906
  Receipt Date: 20180906
  Transmission Date: 20181010
  Serious: No
  Sender: FDA-Public Use
  Company Number: US-PERRIGO-18US002665

PATIENT
  Age: 46 Year
  Sex: Female
  Weight: 45.35 kg

DRUGS (3)
  1. EVAMIST [Suspect]
     Active Substance: ESTRADIOL
     Indication: HORMONE REPLACEMENT THERAPY
     Dosage: 4.59 MG, QD
     Route: 062
     Dates: start: 2014, end: 20180217
  2. EVAMIST [Suspect]
     Active Substance: ESTRADIOL
     Dosage: 4.59 MG, QD
     Route: 062
     Dates: start: 20180218, end: 20180224
  3. EVAMIST [Suspect]
     Active Substance: ESTRADIOL
     Dosage: THREE 1/4 SPRAYS, QD
     Route: 062
     Dates: start: 20180225, end: 20180306

REACTIONS (2)
  - Underdose [Recovered/Resolved]
  - Drug effect decreased [Unknown]

NARRATIVE: CASE EVENT DATE: 20180225
